FAERS Safety Report 4299036-3 (Version None)
Quarter: 2004Q1

REPORT INFORMATION
  Report Type: 
  Country: None (occurrence: None)
  Receive Date: 20040217
  Receipt Date: 20040204
  Transmission Date: 20041129
  Serious: Yes (Hospitalization)
  Sender: FDA-Public Use
  Company Number: 2003AP04280

PATIENT
  Age: 61 Year
  Sex: Male

DRUGS (5)
  1. CASODEX [Suspect]
     Indication: PROSTATE CANCER
     Dosage: 80 MG DAILY PO
     Route: 048
     Dates: start: 20031028, end: 20031111
  2. ZOLADEX [Suspect]
     Indication: PROSTATE CANCER
     Dosage: 3.6 MG SQ
     Dates: start: 20030527
  3. AMLODIN [Concomitant]
  4. LERITE [Concomitant]
  5. CONIEL [Concomitant]

REACTIONS (1)
  - DIABETES MELLITUS [None]
